FAERS Safety Report 18797815 (Version 1)
Quarter: 2021Q1

REPORT INFORMATION
  Report Type: Spontaneous
  Country: DE (occurrence: DE)
  Receive Date: 20210128
  Receipt Date: 20210128
  Transmission Date: 20210419
  Serious: Yes (Other)
  Sender: FDA-Public Use
  Company Number: DE-TEVA-2021-DE-1872954

PATIENT
  Age: 55 Year
  Sex: Male

DRUGS (5)
  1. METHOTREXAT [Concomitant]
     Active Substance: METHOTREXATE
  2. PREDNISOLONE. [Concomitant]
     Active Substance: PREDNISOLONE
  3. AJOVY [Suspect]
     Active Substance: FREMANEZUMAB-VFRM
     Indication: MIGRAINE
     Route: 065
     Dates: end: 202011
  4. TORASEMID [Concomitant]
     Active Substance: TORSEMIDE
  5. VERAPAMIL [Concomitant]
     Active Substance: VERAPAMIL HYDROCHLORIDE

REACTIONS (1)
  - Rheumatoid arthritis [Recovered/Resolved]

NARRATIVE: CASE EVENT DATE: 202011
